FAERS Safety Report 5252778-5 (Version None)
Quarter: 2007Q1

REPORT INFORMATION
  Report Type: 
  Country: None (occurrence: None)
  Receive Date: 20070301
  Receipt Date: 20061215
  Transmission Date: 20070707
  Serious: Yes (Life-Threatening, Other)
  Sender: FDA-Public Use
  Company Number: US-GLAXOSMITHKLINE-A0629716A

PATIENT
  Age: 32 Year
  Sex: Male
  Weight: 90.9 kg

DRUGS (4)
  1. LAMICTAL [Suspect]
     Indication: EPILEPSY
     Route: 048
     Dates: start: 20060601
  2. DILANTIN [Concomitant]
     Dosage: 200MG TWICE PER DAY
     Dates: start: 20051201
  3. KEPPRA [Concomitant]
     Dosage: 1500MG TWICE PER DAY
     Route: 048
     Dates: start: 20060322
  4. VALIUM [Concomitant]
     Dosage: 5MG AS REQUIRED
     Route: 048
     Dates: start: 20061016

REACTIONS (7)
  - CHEILITIS [None]
  - LIP EXFOLIATION [None]
  - MOUTH ULCERATION [None]
  - ORAL MUCOSAL EXFOLIATION [None]
  - PHARYNGEAL ULCERATION [None]
  - RASH [None]
  - STEVENS-JOHNSON SYNDROME [None]
